FAERS Safety Report 9351218 (Version 3)
Quarter: 2013Q3

REPORT INFORMATION
  Report Type: Spontaneous
  Country: DE (occurrence: DE)
  Receive Date: 20130617
  Receipt Date: 20130822
  Transmission Date: 20140515
  Serious: Yes (Other)
  Sender: FDA-Public Use
  Company Number: DE-PFIZER INC-2013177542

PATIENT
  Age: 89 Year
  Sex: Female
  Weight: 60 kg

DRUGS (4)
  1. XALATAN [Suspect]
     Indication: INTRAOCULAR PRESSURE INCREASED
     Dosage: 1 DF, 1X/DAY (FOR MANY YEARS)
     Route: 047
  2. XALATAN [Suspect]
     Dosage: 1 DF, 1X/DAY (IN THE EVENING)
     Route: 047
     Dates: start: 20130608, end: 20130610
  3. XALATAN [Suspect]
     Dosage: 1 DF, 1X/DAY AT NIGHT
     Route: 047
     Dates: start: 20130611
  4. BRIMONIDINE [Concomitant]
     Indication: INTRAOCULAR PRESSURE INCREASED
     Dosage: 1 DF, 1X/DAY (IN THE MORNING)
     Route: 047

REACTIONS (2)
  - Visual impairment [Recovered/Resolved]
  - Product quality issue [Recovered/Resolved]
